FAERS Safety Report 17434900 (Version 1)
Quarter: 2020Q1

REPORT INFORMATION
  Report Type: Spontaneous
  Country: US (occurrence: US)
  Receive Date: 20200204
  Receipt Date: 20200204
  Transmission Date: 20200409
  Serious: Yes (Hospitalization)
  Sender: FDA-Public Use
  Company Number: None

PATIENT
  Sex: Female

DRUGS (1)
  1. GILENYA [Suspect]
     Active Substance: FINGOLIMOD HYDROCHLORIDE
     Indication: MULTIPLE SCLEROSIS
     Route: 048
     Dates: start: 20190409, end: 202001

REACTIONS (5)
  - Bradycardia [None]
  - Hypertensive emergency [None]
  - Lymphopenia [None]
  - Multiple sclerosis relapse [None]
  - Cognitive disorder [None]
